FAERS Safety Report 25633182 (Version 3)
Quarter: 2025Q4

REPORT INFORMATION
  Report Type: Spontaneous
  Country: EU (occurrence: EU)
  Receive Date: 20250801
  Receipt Date: 20251120
  Transmission Date: 20260117
  Serious: Yes (Hospitalization, Other)
  Sender: RANBAXY
  Company Number: EU-SUN PHARMACEUTICAL INDUSTRIES LTD-2025R1-519815

PATIENT
  Age: 38 Year
  Sex: Female

DRUGS (6)
  1. MAGNESIUM SULFATE [Suspect]
     Active Substance: MAGNESIUM SULFATE
     Indication: Generalised tonic-clonic seizure
     Dosage: 5 GRAM
     Route: 042
  2. MAGNESIUM SULFATE [Suspect]
     Active Substance: MAGNESIUM SULFATE
     Dosage: 5 MILLIGRAM
     Route: 065
  3. MIDAZOLAM [Suspect]
     Active Substance: MIDAZOLAM
     Indication: Muscle twitching
     Dosage: 5 MILLIGRAM
     Route: 042
  4. LEVETIRACETAM [Suspect]
     Active Substance: LEVETIRACETAM
     Indication: Generalised tonic-clonic seizure
     Dosage: 1500 MILLIGRAM
     Route: 042
  5. LEVETIRACETAM [Suspect]
     Active Substance: LEVETIRACETAM
     Dosage: 1000 MILLIGRAM, DAILY
     Route: 042
  6. LEVETIRACETAM [Suspect]
     Active Substance: LEVETIRACETAM
     Dosage: UNK, DAILY DOSE DOUBLE
     Route: 065

REACTIONS (4)
  - Respiratory failure [Unknown]
  - Drug ineffective [Unknown]
  - Live birth [Unknown]
  - Maternal exposure during pregnancy [Unknown]
